FAERS Safety Report 6754962-8 (Version None)
Quarter: 2010Q2

REPORT INFORMATION
  Report Type: 
  Country: None (occurrence: None)
  Receive Date: 20100602
  Receipt Date: 20100518
  Transmission Date: 20101027
  Serious: Yes (Hospitalization, Other)
  Sender: FDA-Public Use
  Company Number: AUR-APL-2010-01338

PATIENT
  Age: 75 Year
  Sex: Male
  Weight: 85 kg

DRUGS (3)
  1. SIMVASTATIN [Suspect]
     Dosage: 20MG, DAILY, ORAL
     Route: 048
     Dates: start: 20080101, end: 20090101
  2. METOPROLOL TARTRATE [Concomitant]
  3. ENALAPRIL [Concomitant]

REACTIONS (2)
  - LUMBOSACRAL PLEXUS LESION [None]
  - RHABDOMYOLYSIS [None]
